FAERS Safety Report 5998015-5 (Version None)
Quarter: 2008Q4

REPORT INFORMATION
  Report Type: 
  Country: None (occurrence: None)
  Receive Date: 20081211
  Receipt Date: 20081205
  Transmission Date: 20090506
  Serious: Yes (Other)
  Sender: FDA-Public Use
  Company Number: 1000003084

PATIENT
  Age: 70 Year
  Sex: Male

DRUGS (17)
  1. NAMENDA [Suspect]
     Indication: DEMENTIA ALZHEIMER'S TYPE
     Dosage: 5 MG (5 MG, 1 IN 1 D),ORAL
     Route: 048
     Dates: start: 20081002, end: 20081006
  2. NAMENDA [Suspect]
     Indication: DEMENTIA ALZHEIMER'S TYPE
     Dosage: 5 MG (5 MG, 1 IN 1 D),ORAL
     Route: 048
     Dates: start: 20081013, end: 20081017
  3. NAMENDA [Suspect]
     Indication: DEMENTIA ALZHEIMER'S TYPE
     Dosage: 5 MG (5 MG, 1 IN 1 D),ORAL
     Route: 048
     Dates: start: 20080101, end: 20081101
  4. NAMENDA [Suspect]
     Indication: DEMENTIA ALZHEIMER'S TYPE
     Dosage: 5 MG (5 MG, 1 IN 1 D),ORAL
     Route: 048
     Dates: start: 20080101, end: 20080101
  5. NIFEDIPINE [Concomitant]
  6. NITROGLYCERIN [Concomitant]
  7. OMEPRAZOLE [Concomitant]
  8. ACETAMINOPHEN [Concomitant]
  9. DOCUSATE [Concomitant]
  10. HYDROCHLOROTHIAZIDE [Concomitant]
  11. SENOKOT [Concomitant]
  12. MAGNESIUM HYDROXIDE TAB [Concomitant]
  13. LORAZEPAM [Concomitant]
  14. MULTI-VITAMIN [Concomitant]
  15. OLANZAPINE [Concomitant]
  16. DILANTIN(100 MILLIGRAM) [Concomitant]
  17. DONEPEZIL HCL [Concomitant]

REACTIONS (8)
  - AGGRESSION [None]
  - AGITATION [None]
  - COMMUNICATION DISORDER [None]
  - CONVULSION [None]
  - DISEASE RECURRENCE [None]
  - LOSS OF CONSCIOUSNESS [None]
  - POSTICTAL STATE [None]
  - TREMOR [None]
